FAERS Safety Report 6359238-9 (Version None)
Quarter: 2009Q3

REPORT INFORMATION
  Report Type: 
  Country: None (occurrence: None)
  Receive Date: 20090917
  Receipt Date: 20090914
  Transmission Date: 20100115
  Serious: Yes (Death, Hospitalization)
  Sender: FDA-Public Use
  Company Number: PHHY2009MX37315

PATIENT
  Age: 76 Year
  Sex: Male

DRUGS (1)
  1. EXELON [Suspect]
     Indication: DEMENTIA ALZHEIMER'S TYPE
     Dosage: 1 PATCH (10 CM2) PER DAY
     Route: 062
     Dates: start: 20080801, end: 20090201

REACTIONS (4)
  - EMBOLISM [None]
  - EMPHYSEMA [None]
  - LUNG NEOPLASM MALIGNANT [None]
  - PNEUMONIA [None]
